FAERS Safety Report 24567270 (Version 1)
Quarter: 2024Q4

REPORT INFORMATION
  Report Type: Report from Study
  Country: CN (occurrence: CN)
  Receive Date: 20241030
  Receipt Date: 20241030
  Transmission Date: 20250115
  Serious: Yes (Hospitalization)
  Sender: ALEXION PHARMACEUTICALS
  Company Number: CN-AstraZeneca-2024A201175

PATIENT
  Age: 4 Year

DRUGS (4)
  1. SELUMETINIB [Suspect]
     Active Substance: SELUMETINIB
     Indication: Neurofibromatosis
     Dosage: 20 MILLIGRAM
  2. SELUMETINIB [Suspect]
     Active Substance: SELUMETINIB
     Dosage: 20 MILLIGRAM
  3. SELUMETINIB [Suspect]
     Active Substance: SELUMETINIB
     Dosage: 20 MILLIGRAM
  4. SELUMETINIB [Suspect]
     Active Substance: SELUMETINIB
     Dosage: 20 MILLIGRAM

REACTIONS (5)
  - Blood creatine phosphokinase increased [Recovered/Resolved]
  - Blood creatine phosphokinase increased [Not Recovered/Not Resolved]
  - Alpha hydroxybutyrate dehydrogenase increased [Not Recovered/Not Resolved]
  - Blood lactate dehydrogenase increased [Not Recovered/Not Resolved]
  - Aspartate aminotransferase increased [Recovered/Resolved]
